FAERS Safety Report 9775215 (Version 2)
Quarter: 2014Q1

REPORT INFORMATION
  Report Type: Spontaneous
  Country: US (occurrence: US)
  Receive Date: 20131220
  Receipt Date: 20140318
  Transmission Date: 20141002
  Serious: No
  Sender: FDA-Public Use
  Company Number: US-GALDERMA-US13003039

PATIENT
  Age: 79 Year
  Sex: Female

DRUGS (10)
  1. MIRVASO (BRIMONIDINE) TOPICAL GEL, 0.33% [Suspect]
     Indication: ROSACEA
     Dosage: 0.33%
     Route: 061
     Dates: start: 20130924, end: 20130926
  2. SULFA CREAM [Concomitant]
     Indication: ROSACEA
     Dosage: 5%
     Route: 061
     Dates: start: 2008, end: 20130923
  3. SULFA CREAM [Concomitant]
  4. NORITATE (METRONIDAZOLE) CREAM, 1% [Concomitant]
     Indication: ROSACEA
     Dosage: 1%
     Route: 061
     Dates: start: 2003, end: 20130923
  5. NORITATE (METRONIDAZOLE) CREAM, 1% [Concomitant]
     Dosage: 1%
     Route: 061
     Dates: start: 20130926
  6. VITAMIN C [Concomitant]
  7. CALCIUM [Concomitant]
  8. MAGNESIUM [Concomitant]
  9. VITAMIN D [Concomitant]
  10. FLAX SEED OIL [Concomitant]

REACTIONS (2)
  - Erythema [Recovered/Resolved]
  - Skin burning sensation [Recovered/Resolved]
